FAERS Safety Report 13042575 (Version 1)
Quarter: 2016Q4

REPORT INFORMATION
  Report Type: Report from Study
  Country: US (occurrence: US)
  Receive Date: 20161219
  Receipt Date: 20161219
  Transmission Date: 20170207
  Serious: Yes (Hospitalization, Other)
  Sender: FDA-Public Use
  Company Number: US-BAXALTA-2016BLT009269

PATIENT
  Sex: Female

DRUGS (1)
  1. IMMUNOGLOBULIN, NORMAL HUMAN [Suspect]
     Active Substance: HUMAN IMMUNOGLOBULIN G
     Indication: PRIMARY IMMUNODEFICIENCY SYNDROME
     Dosage: MARCH OR APRIL
     Route: 042

REACTIONS (4)
  - Loss of consciousness [Recovered/Resolved]
  - Herpes zoster [Unknown]
  - Anaphylactic shock [Recovered/Resolved]
  - Meningitis [Unknown]
